FAERS Safety Report 20016588 (Version 1)
Quarter: 2021Q4

REPORT INFORMATION
  Report Type: Spontaneous
  Country: US (occurrence: None)
  Receive Date: 20211104
  Receipt Date: 20211104
  Transmission Date: 20220304
  Serious: No
  Sender: FDA-Public Use
  Company Number: None

PATIENT
  Sex: Female

DRUGS (1)
  1. IMATINIB MESYLATE [Suspect]
     Active Substance: IMATINIB MESYLATE
     Indication: Philadelphia positive chronic myeloid leukaemia
     Dosage: FREQUENCY : DAILY;?
     Route: 048
     Dates: start: 20200424

REACTIONS (9)
  - Headache [None]
  - Vomiting [None]
  - Nausea [None]
  - Dizziness [None]
  - Angina pectoris [None]
  - Diarrhoea [None]
  - Chest pain [None]
  - Fatigue [None]
  - Decreased appetite [None]
